FAERS Safety Report 6916591-2 (Version None)
Quarter: 2010Q3

REPORT INFORMATION
  Report Type: 
  Country: None (occurrence: None)
  Receive Date: 20100809
  Receipt Date: 20100809
  Transmission Date: 20110219
  Serious: Yes (Other)
  Sender: FDA-Public Use
  Company Number: None

PATIENT
  Age: 81 Year
  Sex: Female
  Weight: 65.7716 kg

DRUGS (1)
  1. AVELOX [Suspect]
     Indication: EAR CONGESTION
     Dosage: 400MG 24 HOUR PO
     Route: 048
     Dates: start: 20100805, end: 20100805

REACTIONS (3)
  - FLUSHING [None]
  - NERVOUSNESS [None]
  - POLLAKIURIA [None]
